FAERS Safety Report 7700769-4 (Version None)
Quarter: 2011Q3

REPORT INFORMATION
  Report Type: 
  Country: None (occurrence: None)
  Receive Date: 20110822
  Receipt Date: 20110810
  Transmission Date: 20111222
  Serious: Yes (Hospitalization, Other)
  Sender: FDA-Public Use
  Company Number: US-AMGEN-USASP2011040718

PATIENT
  Age: 54 Year
  Sex: Female

DRUGS (1)
  1. ENBREL [Suspect]
     Indication: RHEUMATOID ARTHRITIS
     Dosage: 50 MG, QWK
     Dates: start: 19990101

REACTIONS (8)
  - MYOCARDIAL INFARCTION [None]
  - HUMERUS FRACTURE [None]
  - FINGER DEFORMITY [None]
  - RADIAL NERVE INJURY [None]
  - MUSCULOSKELETAL DISORDER [None]
  - JOINT DESTRUCTION [None]
  - SHOULDER ARTHROPLASTY [None]
  - NAIL OPERATION [None]
